FAERS Safety Report 16780115 (Version 1)
Quarter: 2019Q3

REPORT INFORMATION
  Report Type: Spontaneous
  Country: GB (occurrence: GB)
  Receive Date: 20190906
  Receipt Date: 20190906
  Transmission Date: 20191005
  Serious: Yes (Hospitalization)
  Sender: FDA-Public Use
  Company Number: GB-TEVA-2019-GB-1102675

PATIENT
  Age: 51 Year
  Sex: Male
  Weight: 120 kg

DRUGS (9)
  1. OLANZAPINE. [Concomitant]
     Active Substance: OLANZAPINE
  2. ATORVASTATIN [Concomitant]
     Active Substance: ATORVASTATIN
  3. THIAMINE. [Concomitant]
     Active Substance: THIAMINE
  4. BISOPROLOL [Concomitant]
     Active Substance: BISOPROLOL
  5. RAMIPRIL. [Concomitant]
     Active Substance: RAMIPRIL
  6. LANSOPRAZOLE. [Suspect]
     Active Substance: LANSOPRAZOLE
     Indication: PROPHYLAXIS
     Dosage: 30 MILLIGRAM, ONCE A DAY
     Route: 048
     Dates: end: 20190805
  7. CLOPIDOGREL [Concomitant]
     Active Substance: CLOPIDOGREL BISULFATE
  8. FLUOXETINE [Concomitant]
     Active Substance: FLUOXETINE HYDROCHLORIDE
  9. SALBUTAMOL [Concomitant]
     Active Substance: ALBUTEROL

REACTIONS (8)
  - Vomiting [Unknown]
  - Paraesthesia [Unknown]
  - Hypoaesthesia [Unknown]
  - Blood magnesium decreased [Recovered/Resolved]
  - Blood potassium decreased [Recovered/Resolved]
  - Muscle spasms [Unknown]
  - Hypocalcaemia [Recovered/Resolved]
  - Electrocardiogram QT prolonged [Unknown]

NARRATIVE: CASE EVENT DATE: 20190803
